FAERS Safety Report 22134246 (Version 1)
Quarter: 2023Q1

REPORT INFORMATION
  Report Type: Spontaneous
  Country: CN (occurrence: CN)
  Receive Date: 20230324
  Receipt Date: 20230324
  Transmission Date: 20230417
  Serious: Yes (Death, Other)
  Sender: FDA-Public Use
  Company Number: CN-AMGEN-CHNSP2023049974

PATIENT

DRUGS (1)
  1. FILGRASTIM [Suspect]
     Active Substance: FILGRASTIM
     Indication: Prophylaxis
     Dosage: 1.25-5 UG/KG/D
     Route: 065

REACTIONS (4)
  - Cytokine release syndrome [Fatal]
  - Death [Fatal]
  - Neutropenia [Unknown]
  - Infection [Unknown]
